FAERS Safety Report 5204191-4 (Version None)
Quarter: 2007Q1

REPORT INFORMATION
  Report Type: 
  Country: None (occurrence: None)
  Receive Date: 20070110
  Receipt Date: 20060322
  Transmission Date: 20070707
  Serious: No
  Sender: FDA-Public Use
  Company Number: US-BRISTOL-MYERS SQUIBB COMPANY-13237300

PATIENT
  Age: 34 Year
  Sex: Female

DRUGS (3)
  1. ABILIFY [Suspect]
     Indication: PSYCHIATRIC SYMPTOM
     Route: 048
     Dates: start: 20051123, end: 20051222
  2. WELLBUTRIN [Concomitant]
  3. KLONOPIN [Concomitant]

REACTIONS (1)
  - TONGUE DISORDER [None]
